FAERS Safety Report 14300421 (Version 1)
Quarter: 2017Q4

REPORT INFORMATION
  Report Type: Spontaneous
  Country: FR (occurrence: FR)
  Receive Date: 20171219
  Receipt Date: 20171219
  Transmission Date: 20180321
  Serious: Yes (Hospitalization)
  Sender: FDA-Public Use
  Company Number: FR-BRISTOL-MYERS SQUIBB COMPANY-BMS-2017-112852

PATIENT
  Age: 44 Year
  Sex: Female

DRUGS (2)
  1. OPDIVO [Suspect]
     Active Substance: NIVOLUMAB
     Indication: LUNG CANCER METASTATIC
     Dosage: 200 MG, TOTAL
     Route: 042
     Dates: start: 20171109, end: 20171109
  2. CAPRELSA [Concomitant]
     Active Substance: VANDETANIB
     Indication: LUNG CANCER METASTATIC
     Dosage: 300 MG, QD
     Route: 048
     Dates: start: 20170914, end: 20171026

REACTIONS (2)
  - Conjunctivitis [Recovering/Resolving]
  - Lichenoid keratosis [Recovering/Resolving]

NARRATIVE: CASE EVENT DATE: 20171118
